FAERS Safety Report 15275379 (Version 1)
Quarter: 2018Q3

REPORT INFORMATION
  Report Type: Spontaneous
  Country: US (occurrence: US)
  Receive Date: 20180814
  Receipt Date: 20180814
  Transmission Date: 20181010
  Serious: Yes (Other)
  Sender: FDA-Public Use
  Company Number: US-BAYER-2018-147293

PATIENT
  Age: 52 Year
  Sex: Female

DRUGS (2)
  1. MENOSTAR [Suspect]
     Active Substance: ESTRADIOL
     Indication: OSTEOPOROSIS PROPHYLAXIS
     Dosage: 14 UNK, UNK
     Route: 062
     Dates: end: 201807
  2. MENOSTAR [Suspect]
     Active Substance: ESTRADIOL
     Indication: MENOPAUSAL SYMPTOMS

REACTIONS (7)
  - Pain [None]
  - Application site burn [None]
  - Application site necrosis [None]
  - Arthralgia [None]
  - Peripheral swelling [None]
  - Application site vesicles [None]
  - Neurological symptom [None]

NARRATIVE: CASE EVENT DATE: 201708
